FAERS Safety Report 7052179-3 (Version None)
Quarter: 2010Q4

REPORT INFORMATION
  Report Type: 
  Country: None (occurrence: None)
  Receive Date: 20101019
  Receipt Date: 20101011
  Transmission Date: 20110411
  Serious: Yes (Hospitalization)
  Sender: FDA-Public Use
  Company Number: FR-BRISTOL-MYERS SQUIBB COMPANY-15301419

PATIENT
  Age: 56 Year
  Sex: Male

DRUGS (6)
  1. GLUCOVANCE [Suspect]
     Dosage: 5MG/500MG; FOR 5 TO 6 YRS,ANOTHER BATCH CONTINUED 1 YR AGO.
  2. COAPROVEL [Suspect]
     Dosage: 1 DF=300/25, IN THE MORNING
  3. CRESTOR [Concomitant]
     Dosage: CRESTOR 10MG
  4. ACEBUTOLOL [Concomitant]
     Dosage: ACEBUTOLOL 400MG; 1DF: 0.5DF
  5. NEXIUM [Concomitant]
     Dosage: INEXIUM 40 MG; 1DF: 1(UNIT NOT SPECIFIED)
  6. MEBEVERINE HCL [Concomitant]
     Dosage: MEBEVERINE 200 MG; 2DF

REACTIONS (2)
  - GASTROINTESTINAL DISORDER [None]
  - POISONING [None]
